FAERS Safety Report 13279836 (Version 1)
Quarter: 2017Q1

REPORT INFORMATION
  Report Type: Spontaneous
  Country: US (occurrence: US)
  Receive Date: 20170228
  Receipt Date: 20170228
  Transmission Date: 20170428
  Serious: Yes (Disabling)
  Sender: FDA-Public Use
  Company Number: None

PATIENT
  Age: 58 Year
  Sex: Male
  Weight: 72.9 kg

DRUGS (1)
  1. CELEXA [Suspect]
     Active Substance: CITALOPRAM HYDROBROMIDE
     Indication: DEPRESSION
     Dosage: QUANTITY:40 TABLET(S);OTHER ROUTE:SOLLOW?
     Dates: start: 20170103

REACTIONS (8)
  - Restlessness [None]
  - Asthenia [None]
  - Pyrexia [None]
  - Tachyphrenia [None]
  - Negative thoughts [None]
  - Anxiety [None]
  - Somnolence [None]
  - Disturbance in attention [None]

NARRATIVE: CASE EVENT DATE: 20170226
